FAERS Safety Report 9057322 (Version 1)
Quarter: 2013Q1

REPORT INFORMATION
  Report Type: Spontaneous
  Country: US (occurrence: US)
  Receive Date: 20130131
  Receipt Date: 20130131
  Transmission Date: 20140127
  Serious: Yes (Other)
  Sender: FDA-Public Use
  Company Number: US-NOVEN-13US006027

PATIENT
  Age: 62 Year
  Sex: Female

DRUGS (3)
  1. PAROXETINE [Suspect]
     Indication: ANXIETY
     Dosage: 10 MG, QD
  2. ZOLPIDEM [Suspect]
     Indication: INSOMNIA
     Dosage: 10 MG, EVENING
  3. ZOLPIDEM [Suspect]
     Dosage: 2 OR 3 10 MG-PILLS + 1 OR MORE

REACTIONS (22)
  - Homicide [Unknown]
  - Drug interaction [Unknown]
  - Overdose [Unknown]
  - Drug ineffective [Unknown]
  - Disorientation [Unknown]
  - Speech disorder [Unknown]
  - Suicidal behaviour [Unknown]
  - Self injurious behaviour [Unknown]
  - Suicidal ideation [Unknown]
  - Delirium [Unknown]
  - Consciousness fluctuating [Unknown]
  - Cognitive disorder [Unknown]
  - Psychotic disorder [Unknown]
  - Dissociative disorder [Unknown]
  - Major depression [Unknown]
  - Emotional poverty [Unknown]
  - Emotional disorder [Unknown]
  - Aggression [Unknown]
  - Amnesia [Unknown]
  - Abnormal behaviour [Unknown]
  - Confusional state [Unknown]
  - Anterograde amnesia [Unknown]
